FAERS Safety Report 5750318-5 (Version None)
Quarter: 2008Q2

REPORT INFORMATION
  Report Type: 
  Country: None (occurrence: None)
  Receive Date: 20080521
  Receipt Date: 20080521
  Transmission Date: 20081010
  Serious: No
  Sender: FDA-Public Use
  Company Number: None

PATIENT
  Sex: Female

DRUGS (1)
  1. NEXAVAR [Suspect]
     Dosage: 400MG BID PO
     Route: 048
     Dates: start: 20080505, end: 20080520

REACTIONS (2)
  - ABASIA [None]
  - UNEVALUABLE EVENT [None]
